FAERS Safety Report 6089512-5 (Version None)
Quarter: 2009Q1

REPORT INFORMATION
  Report Type: 
  Country: None (occurrence: None)
  Receive Date: 20090220
  Receipt Date: 20090206
  Transmission Date: 20090719
  Serious: Yes (Hospitalization)
  Sender: FDA-Public Use
  Company Number: FABR-1000640

PATIENT
  Age: 13 Year
  Sex: Male
  Weight: 57.6 kg

DRUGS (6)
  1. FABRAZYME [Suspect]
     Indication: FABRY'S DISEASE
     Dosage: 55 MG, Q2W, INTRAVENOUS
     Route: 042
  2. FABRAZYME [Suspect]
  3. ACETAMINOPHEN [Concomitant]
  4. ATARAX [Concomitant]
  5. SOLU-CORTEF [Concomitant]
  6. BENADRYL [Concomitant]

REACTIONS (1)
  - FABRY'S DISEASE [None]
